FAERS Safety Report 8187407 (Version 2)
Quarter: 2012Q4

REPORT INFORMATION
  Report Type: 
  Country: US (occurrence: US)
  Receive Date: 20111018
  Receipt Date: 20120905
  Transmission Date: 20130627
  Serious: Yes (Hospitalization)
  Sender: FDA-Public Use
  Company Number: US-ASTRAZENECA-2011SE18906

PATIENT
  Age: 82 Year
  Sex: Female

DRUGS (1)
  1. SYMBICORT PMDI [Suspect]
     Route: 055

REACTIONS (5)
  - Pneumonia [Unknown]
  - Back disorder [Unknown]
  - Cardiac disorder [Unknown]
  - Gastric disorder [Unknown]
  - Sinus disorder [Unknown]
